FAERS Safety Report 7344418-6 (Version None)
Quarter: 2011Q1

REPORT INFORMATION
  Report Type: 
  Country: None (occurrence: None)
  Receive Date: 20110310
  Receipt Date: 20110309
  Transmission Date: 20110831
  Serious: Yes (Congenital Anomaly, Other)
  Sender: FDA-Public Use
  Company Number: GXKR2011DE01147

PATIENT
  Sex: Male
  Weight: 51 kg

DRUGS (2)
  1. PAROXAT [Suspect]
     Indication: ANXIETY DISORDER
     Dosage: 20 MG, QD
     Route: 064
     Dates: start: 20081115, end: 20090824
  2. FEMIBION [Concomitant]
     Indication: PROPHYLAXIS OF NEURAL TUBE DEFECT
     Dosage: 0.8 MG, QD
     Route: 064

REACTIONS (3)
  - ATRIAL SEPTAL DEFECT [None]
  - TRANSIENT TACHYPNOEA OF THE NEWBORN [None]
  - PATENT DUCTUS ARTERIOSUS [None]
